FAERS Safety Report 11981627 (Version 1)
Quarter: 2016Q1

REPORT INFORMATION
  Report Type: Spontaneous
  Country: US (occurrence: None)
  Receive Date: 20160129
  Receipt Date: 20160129
  Transmission Date: 20160526
  Serious: Yes (Life-Threatening, Hospitalization)
  Sender: FDA-Public Use
  Company Number: None

PATIENT
  Age: 4 Month
  Sex: Female
  Weight: 4.5 kg

DRUGS (2)
  1. TYLENOL [Concomitant]
     Active Substance: ACETAMINOPHEN
  2. SYNAGIS [Suspect]
     Active Substance: PALIVIZUMAB
     Indication: ANTIVIRAL PROPHYLAXIS
     Dosage: 60 MG + 70 MG MONTHLY INTRAMUSCULAR
     Route: 030
     Dates: start: 20151204, end: 20151231

REACTIONS (3)
  - Meningitis streptococcal [None]
  - Shock [None]
  - Sepsis [None]

NARRATIVE: CASE EVENT DATE: 20160101
